FAERS Safety Report 5503857-6 (Version None)
Quarter: 2007Q4

REPORT INFORMATION
  Report Type: 
  Country: None (occurrence: None)
  Receive Date: 20071030
  Receipt Date: 20071016
  Transmission Date: 20080405
  Serious: No
  Sender: FDA-Public Use
  Company Number: B0492721A

PATIENT
  Age: 52 Year
  Sex: Female

DRUGS (4)
  1. ABACAVIR SULFATE [Suspect]
     Indication: HIV INFECTION
  2. LAMIVUDINE [Concomitant]
  3. RITONAVIR [Concomitant]
  4. ATAZANAVIR SULFATE [Concomitant]

REACTIONS (5)
  - CONDITION AGGRAVATED [None]
  - CRYPTOGENIC ORGANISING PNEUMONIA [None]
  - DRUG HYPERSENSITIVITY [None]
  - IMMUNE RECONSTITUTION SYNDROME [None]
  - PNEUMONIA PRIMARY ATYPICAL [None]
